FAERS Safety Report 9402661 (Version 9)
Quarter: 2014Q1

REPORT INFORMATION
  Report Type: Report from Study
  Country: MY (occurrence: MY)
  Receive Date: 20130716
  Receipt Date: 20140211
  Transmission Date: 20141002
  Serious: Yes (Hospitalization)
  Sender: FDA-Public Use
  Company Number: MY-009507513-1307MYS006318

PATIENT
  Age: 57 Year
  Sex: Male
  Weight: 52 kg

DRUGS (18)
  1. BOCEPREVIR [Suspect]
     Indication: CHRONIC HEPATITIS C
     Dosage: 4 CAPSULES, UNK
     Route: 048
     Dates: start: 20130503, end: 20130503
  2. BOCEPREVIR [Suspect]
     Dosage: 4 CAPSULES, MORNING
     Route: 048
     Dates: start: 20130504, end: 20130706
  3. BOCEPREVIR [Suspect]
     Dosage: 4 CAPSULES, AFTERNOON
     Route: 048
     Dates: start: 20130504, end: 20130705
  4. BOCEPREVIR [Suspect]
     Dosage: 4 CAPSULES, EVENING
     Route: 048
     Dates: start: 20130504, end: 20130705
  5. BOCEPREVIR [Suspect]
     Dosage: 4 CAPSULES, MORNING
     Route: 048
     Dates: start: 20130711, end: 20130714
  6. BOCEPREVIR [Suspect]
     Dosage: 4 CAPSULES, AFTERNOON
     Route: 048
     Dates: start: 20130711, end: 20130723
  7. BOCEPREVIR [Suspect]
     Dosage: 4 CAPSULES, EVENING
     Route: 048
     Dates: start: 20130711, end: 20130723
  8. PEGINTERFERON ALFA-2A [Suspect]
     Indication: CHRONIC HEPATITIS C
     Dosage: 180 MICROGRAM, QW
     Route: 058
     Dates: start: 20130321
  9. RIBAVIRIN [Suspect]
     Indication: CHRONIC HEPATITIS C
     Dosage: 2 CAPSULES, UNK
     Route: 048
     Dates: start: 20130321, end: 20130321
  10. RIBAVIRIN [Suspect]
     Dosage: 2 CAPSULES, QAM
     Route: 048
     Dates: start: 20130322, end: 20130705
  11. RIBAVIRIN [Suspect]
     Dosage: 3 CAPSULES, QPM
     Route: 048
     Dates: start: 20130321, end: 20130705
  12. RIBAVIRIN [Suspect]
     Dosage: 2 CAPSULES, QAM
     Route: 048
     Dates: start: 20130718, end: 20130723
  13. RIBAVIRIN [Suspect]
     Dosage: 1 CAPSULES, QPM
     Route: 048
     Dates: start: 20130717, end: 20130723
  14. LORATADINE [Concomitant]
     Indication: RHINITIS ALLERGIC
     Dosage: 10 MG, QD
     Route: 048
     Dates: start: 20130220
  15. NASONEX [Concomitant]
     Indication: RHINITIS ALLERGIC
     Dosage: TOTL DAILY DOSE 4 PUFF,; STRENGHT 2 PUFF
     Route: 045
     Dates: start: 20130220
  16. BERODUAL [Concomitant]
     Indication: ASTHMA
     Dosage: STRENGTH 2 PUFF. TOTAL DAILY DOSE 4 PUFF
     Route: 055
     Dates: start: 200805
  17. BUDESONIDE [Concomitant]
     Indication: ASTHMA
     Dosage: STRENGHT 2 PUFF. TOTAL DAILY DOSE: 4 PUFF
     Route: 045
     Dates: start: 20130528
  18. PREDNISOLONE [Concomitant]
     Indication: ASTHMA
     Dosage: 30 MG, QD, FORMULATION: SPRAY.
     Route: 048
     Dates: start: 20130708, end: 20130712

REACTIONS (1)
  - Pneumonia [Recovered/Resolved]
